FAERS Safety Report 13141115 (Version 1)
Quarter: 2017Q1

REPORT INFORMATION
  Report Type: Spontaneous
  Country: US (occurrence: US)
  Receive Date: 20170123
  Receipt Date: 20170123
  Transmission Date: 20170428
  Serious: Yes (Hospitalization)
  Sender: FDA-Public Use
  Company Number: None

PATIENT
  Age: 63 Year
  Sex: Female

DRUGS (1)
  1. XOLAIR [Suspect]
     Active Substance: OMALIZUMAB
     Indication: NEOPLASM MALIGNANT
     Dosage: FREQUENCY - Q 4 WEEKS
     Route: 058
     Dates: start: 20140326

REACTIONS (2)
  - Pelvic fracture [None]
  - Fall [None]

NARRATIVE: CASE EVENT DATE: 20161228
